FAERS Safety Report 24226019 (Version 1)
Quarter: 2024Q3

REPORT INFORMATION
  Report Type: Spontaneous
  Country: PT (occurrence: PT)
  Receive Date: 20240820
  Receipt Date: 20240820
  Transmission Date: 20241017
  Serious: Yes (Life-Threatening, Hospitalization, Other)
  Sender: AUROBINDO
  Company Number: PT-INFARMED-R202408-146

PATIENT
  Age: 20 Year
  Sex: Female

DRUGS (3)
  1. BISOPROLOL [Suspect]
     Active Substance: BISOPROLOL\BISOPROLOL FUMARATE
     Indication: Product used for unknown indication
     Dosage: UNK (80 COMPRIMIDOS)
     Route: 048
     Dates: start: 20240728, end: 20240728
  2. ESCITALOPRAM [Suspect]
     Active Substance: ESCITALOPRAM OXALATE
     Indication: Product used for unknown indication
     Dosage: UNK (56 CP A 28/07/2024)
     Route: 048
     Dates: start: 20240728
  3. AMLODIPINE BESYLATE\INDAPAMIDE\PERINDOPRIL ARGININE [Suspect]
     Active Substance: AMLODIPINE BESYLATE\INDAPAMIDE\PERINDOPRIL ARGININE
     Indication: Suicide attempt
     Dosage: UNK (30 CP)
     Route: 048
     Dates: start: 20240728, end: 20240728

REACTIONS (1)
  - Distributive shock [Recovering/Resolving]

NARRATIVE: CASE EVENT DATE: 20240728
